FAERS Safety Report 18044054 (Version 1)
Quarter: 2020Q3

REPORT INFORMATION
  Report Type: Spontaneous
  Country: US (occurrence: US)
  Receive Date: 20200720
  Receipt Date: 20200720
  Transmission Date: 20201103
  Serious: No
  Sender: FDA-Public Use
  Company Number: US-SA-2020SA184953

PATIENT

DRUGS (2)
  1. LANTUS [Suspect]
     Active Substance: INSULIN GLARGINE
     Indication: TYPE 2 DIABETES MELLITUS
     Dosage: 60 IU IN THE AM AND PM
     Dates: start: 20160715
  2. LANTUS [Suspect]
     Active Substance: INSULIN GLARGINE
     Dosage: ADJUSTS HER DOSE ACCORDING TO A SLIDING SCALE AT NIGHT

REACTIONS (3)
  - Off label use [Unknown]
  - Intentional product misuse [Unknown]
  - Visual impairment [Unknown]

NARRATIVE: CASE EVENT DATE: 20160715
